FAERS Safety Report 4333104-2 (Version None)
Quarter: 2004Q2

REPORT INFORMATION
  Report Type: 
  Country: None (occurrence: None)
  Receive Date: 20040405
  Receipt Date: 20040405
  Transmission Date: 20050107
  Serious: Yes (Other)
  Sender: FDA-Public Use
  Company Number: None

PATIENT
  Age: 20 Year
  Sex: Female
  Weight: 63.5036 kg

DRUGS (2)
  1. PHENERGAN [Suspect]
     Indication: NAUSEA
     Dosage: IV
     Route: 042
  2. PHENERGAN [Suspect]
     Indication: VOMITING
     Dosage: IV
     Route: 042

REACTIONS (5)
  - CONVULSION [None]
  - MOANING [None]
  - MOVEMENT DISORDER [None]
  - SCREAMING [None]
  - SPEECH DISORDER [None]
